FAERS Safety Report 5547262-5 (Version None)
Quarter: 2007Q4

REPORT INFORMATION
  Report Type: 
  Country: None (occurrence: None)
  Receive Date: 20071211
  Receipt Date: 20071204
  Transmission Date: 20080405
  Serious: Yes (Other)
  Sender: FDA-Public Use
  Company Number: B0498726A

PATIENT
  Age: 3 Year
  Sex: Male

DRUGS (1)
  1. ZOVIRAX [Suspect]
     Dosage: 1APP PER DAY
     Route: 065
     Dates: start: 20071120, end: 20071203

REACTIONS (2)
  - INCORRECT DOSE ADMINISTERED [None]
  - ULCERATIVE KERATITIS [None]
